FAERS Safety Report 15121240 (Version 1)
Quarter: 2018Q3

REPORT INFORMATION
  Report Type: Spontaneous
  Country: US (occurrence: US)
  Receive Date: 20180709
  Receipt Date: 20180709
  Transmission Date: 20181010
  Serious: No
  Sender: FDA-Public Use
  Company Number: US-HORIZON-PEN-0630-2018

PATIENT
  Age: 58 Year
  Sex: Female

DRUGS (1)
  1. PENNSAID [Suspect]
     Active Substance: DICLOFENAC SODIUM
     Indication: TENDONITIS
     Dosage: TWICE A DAY
     Dates: start: 20180630

REACTIONS (2)
  - Off label use [Unknown]
  - Application site pruritus [Recovered/Resolved]

NARRATIVE: CASE EVENT DATE: 20180630
